FAERS Safety Report 7202741-X (Version None)
Quarter: 2010Q4

REPORT INFORMATION
  Report Type: 
  Country: None (occurrence: None)
  Receive Date: 20101229
  Receipt Date: 20101222
  Transmission Date: 20110411
  Serious: Yes (Other)
  Sender: FDA-Public Use
  Company Number: BR-PFIZER INC-2010120762

PATIENT
  Age: 60 Year
  Sex: Male
  Weight: 116 kg

DRUGS (9)
  1. CHAMPIX [Suspect]
     Indication: TOBACCO USER
     Dosage: 0.5 MG, 1X/DAY
     Route: 048
     Dates: start: 20100919, end: 20100101
  2. CHAMPIX [Suspect]
     Dosage: 1 MG, 2X/DAY
     Route: 048
     Dates: start: 20100926, end: 20100101
  3. RIVOTRIL [Concomitant]
     Indication: PANIC DISORDER
     Dosage: 2 MG, 1X/DAY
  4. ZOLPIDEM [Concomitant]
     Indication: INSOMNIA
     Dosage: 20 MG, 1X/DAY
  5. AMPLICTIL [Concomitant]
     Indication: INSOMNIA
     Dosage: 100 MG, 1X/DAY
  6. SIMVASTATIN [Concomitant]
     Indication: BLOOD CHOLESTEROL INCREASED
     Dosage: 20 MG, 1X/DAY
  7. PAROXETINE HYDROCHLORIDE [Concomitant]
     Dosage: UNK
  8. PAMELOR [Concomitant]
     Dosage: UNK
  9. BUPROPION [Concomitant]
     Dosage: UNK

REACTIONS (1)
  - HYPERTENSION [None]
